FAERS Safety Report 8238882-8 (Version None)
Quarter: 2012Q1

REPORT INFORMATION
  Report Type: 
  Country: None (occurrence: None)
  Receive Date: 20120327
  Receipt Date: 20120321
  Transmission Date: 20120608
  Serious: Yes (Other)
  Sender: FDA-Public Use
  Company Number: US-PFIZER INC-2012062957

PATIENT
  Sex: Female
  Weight: 113 kg

DRUGS (19)
  1. PROGRAF [Concomitant]
     Dosage: 5 MG, 2X/DAY
  2. WELLBUTRIN [Concomitant]
     Dosage: 100 MG, DAILY
  3. HYOSCYAMINE [Concomitant]
     Dosage: 0.125 MG, AS NEEDED
  4. PLAVIX [Concomitant]
     Dosage: 75 MG, UNK
  5. VALIUM [Concomitant]
     Dosage: 5 MG, DAILY
  6. EFFEXOR XR [Suspect]
     Indication: DEPRESSION
  7. TAMIFLU [Concomitant]
     Dosage: 75 MG, UNK
  8. SINGULAIR [Concomitant]
     Indication: ASTHMA
     Dosage: 10 MG, DAILY
  9. ACIPHEX [Concomitant]
     Indication: HYPERCHLORHYDRIA
     Dosage: 20 MG, DAILY
  10. LISINOPRIL [Suspect]
     Indication: HYPERTENSION
     Dosage: 20 MG, DAILY
     Dates: start: 20050101
  11. ACIPHEX [Concomitant]
     Indication: GASTRITIS
  12. LIPITOR [Suspect]
     Dosage: UNK
     Route: 048
  13. METOPROLOL TARTRATE [Suspect]
     Indication: HYPERTENSION
     Dosage: 50 MG IN THE MORNING AND 100 MG AT NIGHT, 2X/DAY
  14. IMURAN [Concomitant]
     Dosage: 100 MG, DAILY
  15. EFFEXOR XR [Suspect]
     Indication: ANXIETY
     Dosage: 150 MG, DAILY
     Dates: start: 20030101
  16. EFFEXOR XR [Suspect]
     Indication: AFFECTIVE DISORDER
  17. LYRICA [Suspect]
     Dosage: UNK
  18. NOVOLOG [Concomitant]
     Indication: DIABETES MELLITUS
     Dosage: 10 MG, 2X/DAY
  19. HUMULIN N [Concomitant]
     Indication: DIABETES MELLITUS
     Dosage: 30MG IN THE MORNING AND 10MG AT NIGHT

REACTIONS (4)
  - RENAL TRANSPLANT [None]
  - SUICIDAL IDEATION [None]
  - LYMPHOCYTE COUNT DECREASED [None]
  - DEPRESSION [None]
